FAERS Safety Report 7303844-1 (Version None)
Quarter: 2011Q1

REPORT INFORMATION
  Report Type: 
  Country: None (occurrence: None)
  Receive Date: 20110221
  Receipt Date: 20110214
  Transmission Date: 20110831
  Serious: Yes (Congenital Anomaly)
  Sender: FDA-Public Use
  Company Number: A0899574A

PATIENT
  Sex: Female
  Weight: 3 kg

DRUGS (1)
  1. PAXIL [Suspect]
     Indication: DEPRESSION
     Route: 064

REACTIONS (4)
  - CLEFT PALATE [None]
  - TETHERED CORD SYNDROME [None]
  - VELOPHARYNGEAL INCOMPETENCE [None]
  - DRUG EXPOSURE DURING PREGNANCY [None]
